FAERS Safety Report 16269833 (Version 3)
Quarter: 2019Q2

REPORT INFORMATION
  Report Type: Spontaneous
  Country: US (occurrence: US)
  Receive Date: 20190503
  Receipt Date: 20190607
  Transmission Date: 20190711
  Serious: Yes (Other)
  Sender: FDA-Public Use
  Company Number: US-GLAXOSMITHKLINE-US2019AMR072174

PATIENT
  Age: 88 Year
  Sex: Female
  Weight: 55.84 kg

DRUGS (1)
  1. COREG [Suspect]
     Active Substance: CARVEDILOL
     Indication: PRODUCT USED FOR UNKNOWN INDICATION
     Dosage: UNK

REACTIONS (8)
  - Accident [Unknown]
  - Nightmare [Recovered/Resolved]
  - Overdose [Unknown]
  - Atrial fibrillation [Unknown]
  - Skin laceration [Unknown]
  - Fall [Unknown]
  - Palpitations [Unknown]
  - Hypotension [Unknown]

NARRATIVE: CASE EVENT DATE: 20180808
